FAERS Safety Report 20161482 (Version 2)
Quarter: 2021Q4

REPORT INFORMATION
  Report Type: Spontaneous
  Country: JP (occurrence: JP)
  Receive Date: 20211208
  Receipt Date: 20211214
  Transmission Date: 20220303
  Serious: Yes (Hospitalization, Other)
  Sender: FDA-Public Use
  Company Number: JP-BRISTOL-MYERS SQUIBB COMPANY-BMS-2021-014768

PATIENT
  Age: 55 Year
  Sex: Female

DRUGS (5)
  1. YERVOY [Suspect]
     Active Substance: IPILIMUMAB
     Indication: Non-small cell lung cancer recurrent
     Dosage: 1 MILLIGRAM/KILOGRAM, Q6WK
     Route: 041
     Dates: start: 20210119
  2. YERVOY [Suspect]
     Active Substance: IPILIMUMAB
     Dosage: UNK
     Route: 041
     Dates: start: 20210302
  3. OPDIVO [Suspect]
     Active Substance: NIVOLUMAB
     Indication: Non-small cell lung cancer recurrent
     Dosage: 360 MILLIGRAM, Q3WK
     Route: 041
     Dates: start: 20210119
  4. OPDIVO [Suspect]
     Active Substance: NIVOLUMAB
     Dosage: UNK
     Route: 041
     Dates: start: 20210302
  5. OPDIVO [Suspect]
     Active Substance: NIVOLUMAB
     Dosage: UNK
     Route: 041
     Dates: start: 20210824

REACTIONS (11)
  - Adrenocortical insufficiency acute [Recovered/Resolved]
  - Hyperthyroidism [Recovered/Resolved]
  - Depressed level of consciousness [Recovering/Resolving]
  - Thyroid disorder [Unknown]
  - Malaise [Unknown]
  - Decreased appetite [Recovering/Resolving]
  - Neck pain [Recovering/Resolving]
  - Nausea [Recovering/Resolving]
  - Vomiting [Recovering/Resolving]
  - Hyponatraemia [Recovering/Resolving]
  - Headache [Unknown]

NARRATIVE: CASE EVENT DATE: 20210201
